FAERS Safety Report 17644481 (Version 1)
Quarter: 2020Q2

REPORT INFORMATION
  Report Type: Spontaneous
  Country: US (occurrence: US)
  Receive Date: 20200408
  Receipt Date: 20200408
  Transmission Date: 20200713
  Serious: Yes (Life-Threatening, Hospitalization)
  Sender: FDA-Public Use
  Company Number: None

PATIENT
  Age: 37 Year
  Sex: Female
  Weight: 143 kg

DRUGS (7)
  1. SUCCINYLCHOLINE 180MG [Concomitant]
     Dates: start: 20191017, end: 20191017
  2. EPHEDRINE 50MG [Concomitant]
     Dates: start: 20191017, end: 20191017
  3. LIDOCAINE 100MG [Concomitant]
     Dates: start: 20191017, end: 20191017
  4. PROPOFOL 100MG [Concomitant]
     Dates: start: 20191017, end: 20191017
  5. ROCURONIUM 30MG [Concomitant]
     Dates: start: 20191017, end: 20191017
  6. SUGAMMADEX [Suspect]
     Active Substance: SUGAMMADEX
     Indication: ANAESTHESIA REVERSAL
     Dosage: ?          OTHER FREQUENCY:ONCE;?
     Route: 040
     Dates: start: 20191017, end: 20191017
  7. ONDANSETRON 4MG [Concomitant]
     Active Substance: ONDANSETRON
     Dates: start: 20191017, end: 20191017

REACTIONS (3)
  - Cardiac arrest [None]
  - Respiratory distress [None]
  - Bradycardia [None]

NARRATIVE: CASE EVENT DATE: 20191017
